FAERS Safety Report 7245987-7 (Version None)
Quarter: 2011Q1

REPORT INFORMATION
  Report Type: 
  Country: None (occurrence: None)
  Receive Date: 20110126
  Receipt Date: 20110113
  Transmission Date: 20110831
  Serious: Yes (Hospitalization)
  Sender: FDA-Public Use
  Company Number: FR-ELI_LILLY_AND_COMPANY-FR201101003263

PATIENT
  Age: 61 Year
  Sex: Male
  Weight: 59 kg

DRUGS (12)
  1. KARDEGIC [Concomitant]
     Dosage: UNK, UNKNOWN
     Route: 065
  2. LASIX [Concomitant]
     Dosage: 40 MG, 3/D
     Dates: start: 20101116, end: 20101125
  3. PRAVASTATIN [Concomitant]
     Dosage: UNK, UNKNOWN
     Route: 065
  4. KRENOSIN [Concomitant]
  5. NEXIUM [Concomitant]
     Dosage: 20 MG, DAILY (1/D)
     Route: 048
     Dates: start: 20101113, end: 20101125
  6. AMLODIPINE [Concomitant]
  7. EFFIENT [Suspect]
     Dosage: 10 MG, DAILY (1/D)
     Route: 048
     Dates: start: 20101113, end: 20101125
  8. RAMIPRIL [Concomitant]
     Dosage: UNK, UNKNOWN
     Route: 065
  9. LOVENOX [Concomitant]
  10. RISORDAN [Concomitant]
  11. ASPEGIC 325 [Concomitant]
  12. REOPRO [Concomitant]
     Route: 042
     Dates: start: 20101113, end: 20101113

REACTIONS (5)
  - HAEMOPTYSIS [None]
  - PULMONARY OEDEMA [None]
  - THROMBOCYTOPENIA [None]
  - EPISTAXIS [None]
  - GINGIVAL BLEEDING [None]
